FAERS Safety Report 6334423-0 (Version None)
Quarter: 2009Q3

REPORT INFORMATION
  Report Type: 
  Country: None (occurrence: None)
  Receive Date: 20090831
  Receipt Date: 20090819
  Transmission Date: 20100115
  Serious: Yes (Hospitalization)
  Sender: FDA-Public Use
  Company Number: GB-RANBAXY-2007RR-05150

PATIENT
  Age: 68 Year
  Sex: Female

DRUGS (2)
  1. CODEINE SULFATE [Suspect]
     Dosage: 76 MG, UNK
  2. MORPHINE SULFATE [Suspect]
     Dosage: 50 MG, UNK

REACTIONS (5)
  - HYPERKALAEMIA [None]
  - OLIGURIA [None]
  - RESPIRATORY RATE DECREASED [None]
  - SOMNOLENCE [None]
  - THERAPEUTIC AGENT TOXICITY [None]
